FAERS Safety Report 17371154 (Version 1)
Quarter: 2020Q1

REPORT INFORMATION
  Report Type: Spontaneous
  Country: FR (occurrence: FR)
  Receive Date: 20200205
  Receipt Date: 20200205
  Transmission Date: 20200409
  Serious: Yes (Other)
  Sender: FDA-Public Use
  Company Number: FR-SA-2020SA027952

PATIENT
  Age: 73 Year
  Sex: Female

DRUGS (12)
  1. SODIUM FUSIDATE [Suspect]
     Active Substance: FUSIDATE SODIUM
     Indication: SKIN ULCER
     Dosage: 2 - 2 - 2
     Route: 048
     Dates: start: 20191115, end: 20191129
  2. ATORVASTATINE [Concomitant]
     Active Substance: ATORVASTATIN
  3. EUPANTOL [Suspect]
     Active Substance: PANTOPRAZOLE SODIUM
     Indication: GASTROOESOPHAGEAL REFLUX DISEASE
     Dosage: 40 MG, QD
     Route: 048
  4. MOVICOL [Concomitant]
     Active Substance: POLYETHYLENE GLYCOL 3350\POTASSIUM CHLORIDE\SODIUM BICARBONATE\SODIUM CHLORIDE
  5. PARACETAMOL [Concomitant]
     Active Substance: ACETAMINOPHEN
  6. TRAMADOL HCL [Concomitant]
     Active Substance: TRAMADOL HYDROCHLORIDE
  7. ELIQUIS [Concomitant]
     Active Substance: APIXABAN
  8. RIFADINE [Suspect]
     Active Substance: RIFAMPIN
     Indication: SKIN ULCER
     Dosage: 2 - 0 - 2
     Route: 048
     Dates: start: 20191118, end: 20191129
  9. RAMIPRIL. [Concomitant]
     Active Substance: RAMIPRIL
  10. SOTALOL HCL [Concomitant]
     Active Substance: SOTALOL
  11. PANTOPRAZOLE [Concomitant]
     Active Substance: PANTOPRAZOLE
  12. GAVISCON COOL [CALCIUM CARBONATE;SODIUM ALGINATE;SODIUM BICARBONATE] [Concomitant]

REACTIONS (2)
  - Hyponatraemia [Recovered/Resolved]
  - Hypochloraemia [Recovered/Resolved]

NARRATIVE: CASE EVENT DATE: 20191120
